FAERS Safety Report 4488850-7 (Version None)
Quarter: 2004Q4

REPORT INFORMATION
  Report Type: 
  Country: None (occurrence: None)
  Receive Date: 20041029
  Receipt Date: 20041022
  Transmission Date: 20050328
  Serious: Yes (Disabling, Other)
  Sender: FDA-Public Use
  Company Number: GB-MERCK-0410GBR00285

PATIENT
  Age: 74 Year
  Sex: Female

DRUGS (3)
  1. VIOXX [Suspect]
     Indication: OSTEOARTHRITIS
     Route: 048
     Dates: start: 20040725, end: 20041001
  2. BETAHISTINE HYDROCHLORIDE [Concomitant]
     Indication: VERTIGO
     Route: 048
     Dates: start: 20020101
  3. ATENOLOL AND NIFEDIPINE [Concomitant]
     Indication: HYPERTENSION
     Route: 048
     Dates: start: 19990101

REACTIONS (2)
  - ATRIAL FIBRILLATION [None]
  - MALAISE [None]
